FAERS Safety Report 16093544 (Version 2)
Quarter: 2019Q2

REPORT INFORMATION
  Report Type: Spontaneous
  Country: US (occurrence: US)
  Receive Date: 20190320
  Receipt Date: 20190628
  Transmission Date: 20190711
  Serious: No
  Sender: FDA-Public Use
  Company Number: US-TEVA-2019-US-1016847

PATIENT
  Age: 89 Year
  Sex: Male

DRUGS (2)
  1. ENOXAPARIN SODIUM INJECTION TEVA [Suspect]
     Active Substance: ENOXAPARIN SODIUM
     Dates: start: 2017
  2. ENOXAPARIN SODIUM INJECTION TEVA [Suspect]
     Active Substance: ENOXAPARIN SODIUM
     Indication: THROMBOSIS
     Dosage: DOSE STRENGTH:  60 MG/0.6 ML
     Route: 065
     Dates: start: 20190217

REACTIONS (3)
  - Injection site bruising [Recovered/Resolved]
  - Wrong technique in product usage process [Unknown]
  - Product quality issue [Unknown]

NARRATIVE: CASE EVENT DATE: 20190217
